FAERS Safety Report 6827269-8 (Version None)
Quarter: 2010Q3

REPORT INFORMATION
  Report Type: 
  Country: None (occurrence: None)
  Receive Date: 20100709
  Receipt Date: 20100629
  Transmission Date: 20110219
  Serious: Yes (Other)
  Sender: FDA-Public Use
  Company Number: US-WYE-H15955710

PATIENT
  Sex: Female
  Weight: 111.23 kg

DRUGS (6)
  1. PRISTIQ [Suspect]
     Route: 048
     Dates: start: 20070101, end: 20100101
  2. PRISTIQ [Suspect]
     Dosage: TAPERING BY SPLITTING THE TABLETS
     Dates: start: 20100101
  3. ACETYLSALICYLIC ACID [Suspect]
     Dosage: UNKNOWN
  4. ADDERALL 10 [Concomitant]
     Dosage: UNKNOWN
  5. VICODIN [Concomitant]
     Indication: PAIN
     Dosage: UNKNOWN
  6. ABILIFY [Concomitant]

REACTIONS (10)
  - BACK INJURY [None]
  - BRADYPHRENIA [None]
  - COGNITIVE DISORDER [None]
  - EPISTAXIS [None]
  - HYPOTHYROIDISM [None]
  - INTENTIONAL DRUG MISUSE [None]
  - NECK INJURY [None]
  - PAIN [None]
  - ROAD TRAFFIC ACCIDENT [None]
  - WEIGHT INCREASED [None]
